FAERS Safety Report 18045652 (Version 4)
Quarter: 2020Q3

REPORT INFORMATION
  Report Type: Report from Study
  Country: BR (occurrence: BR)
  Receive Date: 20200720
  Receipt Date: 20200807
  Transmission Date: 20201103
  Serious: Yes (Hospitalization, Disabling, Other)
  Sender: FDA-Public Use
  Company Number: NVSC2020BR202725

PATIENT
  Age: 78 Year
  Sex: Male

DRUGS (7)
  1. CLOPIDOGREL [Suspect]
     Active Substance: CLOPIDOGREL BISULFATE
     Indication: PRODUCT USED FOR UNKNOWN INDICATION
     Dosage: UNK
     Route: 065
     Dates: start: 20200630
  2. SYMBICORT [Concomitant]
     Active Substance: BUDESONIDE\FORMOTEROL FUMARATE DIHYDRATE
     Indication: PRODUCT USED FOR UNKNOWN INDICATION
     Route: 065
  3. FUROSEMIDE. [Concomitant]
     Active Substance: FUROSEMIDE
     Indication: POLYURIA
     Dosage: UNK
     Route: 065
     Dates: start: 20200623
  4. SPIRONOLACTONE. [Concomitant]
     Active Substance: SPIRONOLACTONE
     Indication: PRODUCT USED FOR UNKNOWN INDICATION
     Dosage: UNK
     Route: 065
     Dates: start: 20200623
  5. ENTRESTO [Suspect]
     Active Substance: SACUBITRIL\VALSARTAN
     Indication: CARDIAC FAILURE
     Dosage: UNK BID, EVERY 12 HOURS, AT 8 AM AND AT 8 PM USED FOR 13 DAYS
     Route: 065
     Dates: start: 20200702
  6. ROSUVASTATIN. [Suspect]
     Active Substance: ROSUVASTATIN
     Indication: PRODUCT USED FOR UNKNOWN INDICATION
     Dosage: UNK
     Route: 065
  7. BISOPROL [Concomitant]
     Active Substance: BISOPROLOL FUMARATE
     Indication: PRODUCT USED FOR UNKNOWN INDICATION
     Dosage: UNK
     Route: 065
     Dates: start: 20200630

REACTIONS (17)
  - Heart rate irregular [Unknown]
  - Gait disturbance [Not Recovered/Not Resolved]
  - Cardiovascular disorder [Unknown]
  - Dyspnoea [Unknown]
  - Drug ineffective [Unknown]
  - Diastolic dysfunction [Unknown]
  - Oedema [Unknown]
  - Malaise [Unknown]
  - Hypotension [Unknown]
  - Visual impairment [Unknown]
  - Dizziness [Unknown]
  - Heart rate increased [Recovering/Resolving]
  - Peripheral swelling [Unknown]
  - Infarction [Recovering/Resolving]
  - Pain in extremity [Not Recovered/Not Resolved]
  - Chronic obstructive pulmonary disease [Unknown]
  - Left ventricular hypertrophy [Unknown]

NARRATIVE: CASE EVENT DATE: 20200708
